FAERS Safety Report 6972516 (Version 34)
Quarter: 2014Q1

REPORT INFORMATION
  Report Type: Spontaneous
  Country: US (occurrence: US)
  Receive Date: 20090420
  Receipt Date: 20140228
  Transmission Date: 20141002
  Serious: Yes (Death, Other)
  Sender: FDA-Public Use
  Company Number: PHEH2009US03631

PATIENT
  Age: 77 Year
  Sex: Male
  Weight: 78 kg

DRUGS (31)
  1. AREDIA [Suspect]
     Indication: PLASMA CELL MYELOMA
     Dosage: 500 MG, QMO
     Route: 042
     Dates: start: 2000, end: 200706
  2. AREDIA [Suspect]
     Dosage: 90 MG, QMO
     Route: 042
  3. ZOMETA [Suspect]
     Indication: PLASMA CELL MYELOMA
     Route: 042
  4. ZEMPLAR [Concomitant]
  5. ALLOPURINOL [Concomitant]
  6. FLOMAX ^BOEHRINGER INGELHEIM^ [Concomitant]
  7. LIPITOR [Concomitant]
  8. NEPHROCAPS [Concomitant]
  9. PROSCAR [Concomitant]
  10. PREVACID [Concomitant]
  11. COREG [Concomitant]
  12. HEPARIN [Concomitant]
  13. DEMADEX [Concomitant]
     Dosage: 40 MG, QD
  14. ATENOLOL [Concomitant]
     Dosage: 25 MG, QD
  15. LISINOPRIL [Concomitant]
     Dosage: 10 MG, QD
  16. TERAZOSIN [Concomitant]
     Dosage: 5 MG, QHS
  17. ENTOCORT EC [Concomitant]
  18. FLUCONAZOLE [Concomitant]
     Dosage: 100 MG, QD
  19. PERCOCET [Concomitant]
     Dosage: 1 DF, Q6H
     Route: 048
  20. METOLAZONE [Concomitant]
     Dosage: 5 MG, BID
  21. TORSEMIDE [Concomitant]
  22. METOPROLOL [Concomitant]
     Dosage: 25 MG, BID
  23. LANSOPRAZOLE [Concomitant]
  24. VANCOMYCIN [Concomitant]
     Dosage: 250 MG, QID
  25. LASIX [Concomitant]
  26. PROCRIT [Concomitant]
     Dosage: 6000 U, QW
  27. CHOLESTYRAMINE [Concomitant]
  28. LIPITOR                                 /NET/ [Concomitant]
  29. ASPIRIN ^BAYER^ [Concomitant]
  30. DARVOCET-N [Concomitant]
  31. DAPTOMYCIN [Concomitant]

REACTIONS (148)
  - Death [Fatal]
  - Squamous cell carcinoma [Unknown]
  - Actinic keratosis [Unknown]
  - Seborrhoeic keratosis [Unknown]
  - Skin cancer [Unknown]
  - Osteonecrosis of jaw [Unknown]
  - Injury [Unknown]
  - Disability [Unknown]
  - Pain [Unknown]
  - Anxiety [Unknown]
  - Staphylococcal infection [Unknown]
  - Jaw fracture [Unknown]
  - Gingivitis [Unknown]
  - Primary sequestrum [Unknown]
  - Tooth loss [Unknown]
  - Anhedonia [Unknown]
  - Exposed bone in jaw [Unknown]
  - Tooth disorder [Unknown]
  - Osteomyelitis [Unknown]
  - Soft tissue inflammation [Unknown]
  - Gingival recession [Unknown]
  - Abscess jaw [Unknown]
  - Hypertension [Unknown]
  - Renal failure chronic [Unknown]
  - Arrhythmia [Unknown]
  - Atrial fibrillation [Unknown]
  - Supraventricular tachycardia [Unknown]
  - Renal cyst [Unknown]
  - Ascites [Unknown]
  - Pleural effusion [Unknown]
  - Atelectasis [Unknown]
  - Bundle branch block right [Unknown]
  - Myocardial infarction [Unknown]
  - Cardiomegaly [Unknown]
  - Aortic arteriosclerosis [Unknown]
  - Fluid overload [Unknown]
  - Cardiac failure congestive [Unknown]
  - Dyspnoea [Unknown]
  - Nephrogenic anaemia [Unknown]
  - Clostridium difficile colitis [Unknown]
  - Hypertensive heart disease [Unknown]
  - Peripheral vascular disorder [Unknown]
  - Oedema peripheral [Unknown]
  - Venous occlusion [Unknown]
  - Renal osteodystrophy [Unknown]
  - Monoclonal gammopathy [Unknown]
  - Coronary artery disease [Unknown]
  - Depression [Unknown]
  - Steal syndrome [Unknown]
  - Neuropathy peripheral [Unknown]
  - Bacteraemia [Unknown]
  - Splenomegaly [Unknown]
  - Prostatomegaly [Unknown]
  - Lung neoplasm malignant [Unknown]
  - Amaurosis fugax [Unknown]
  - Light chain disease [Unknown]
  - Diverticulum [Unknown]
  - Bicytopenia [Unknown]
  - Marrow hyperplasia [Unknown]
  - Paraproteinaemia [Unknown]
  - Memory impairment [Unknown]
  - Hiatus hernia [Unknown]
  - Benign prostatic hyperplasia [Unknown]
  - Gout [Unknown]
  - Bursitis [Unknown]
  - Throat cancer [Unknown]
  - Atrioventricular block [Unknown]
  - Chest pain [Unknown]
  - Sleep apnoea syndrome [Unknown]
  - Rotator cuff syndrome [Unknown]
  - Epididymitis [Unknown]
  - Abdominal symptom [Unknown]
  - Gastrooesophageal reflux disease [Unknown]
  - Hypercholesterolaemia [Unknown]
  - Fall [Unknown]
  - Palpitations [Unknown]
  - Weight decreased [Unknown]
  - Calcium metabolism disorder [Unknown]
  - Iron deficiency anaemia [Unknown]
  - Hyperlipidaemia [Unknown]
  - Visual impairment [Unknown]
  - Hypotension [Unknown]
  - Scrotal swelling [Unknown]
  - Otitis externa [Unknown]
  - Muscular weakness [Unknown]
  - Increased tendency to bruise [Unknown]
  - Laceration [Unknown]
  - Dizziness [Unknown]
  - Hypoacusis [Unknown]
  - Hyperuricaemia [Unknown]
  - Ear pain [Unknown]
  - Haemoptysis [Unknown]
  - Dyslipidaemia [Unknown]
  - Herpes zoster [Unknown]
  - Cellulitis [Unknown]
  - Osteitis [Unknown]
  - Gingival cancer [Unknown]
  - Oropharyngeal neoplasm [Unknown]
  - Arteriovenous graft site infection [Unknown]
  - Haemorrhage [Unknown]
  - Hepatic lesion [Unknown]
  - Haemangioma of liver [Unknown]
  - Osteochondrosis [Unknown]
  - Non-Hodgkin^s lymphoma [Unknown]
  - Vertebral column mass [Unknown]
  - Tooth infection [Unknown]
  - Diabetes mellitus [Unknown]
  - Upper respiratory tract infection [Unknown]
  - Cardiomyopathy [Unknown]
  - Pulmonary embolism [Unknown]
  - Colitis microscopic [Unknown]
  - Bradycardia [Unknown]
  - Pain in jaw [Unknown]
  - Sepsis [Unknown]
  - Pulmonary fibrosis [Unknown]
  - Hyponatraemia [Unknown]
  - Mental status changes [Unknown]
  - Confusional state [Unknown]
  - Urinary tract infection [Recovered/Resolved]
  - Presyncope [Unknown]
  - Thrombocytopenia [Unknown]
  - Sick sinus syndrome [Unknown]
  - Prostatitis [Unknown]
  - Bacterial disease carrier [Unknown]
  - Intervertebral disc degeneration [Unknown]
  - Arteriosclerosis coronary artery [Unknown]
  - Pancreatic calcification [Unknown]
  - Osteosclerosis [Unknown]
  - Bone lesion [Unknown]
  - Lymphadenopathy [Unknown]
  - Renal atrophy [Unknown]
  - Exostosis of jaw [Unknown]
  - Mouth ulceration [Unknown]
  - Purulent discharge [Unknown]
  - Ecchymosis [Unknown]
  - Skin lesion [Unknown]
  - Mass [Unknown]
  - VIIth nerve paralysis [Unknown]
  - Wound dehiscence [Unknown]
  - Fibrosis [Unknown]
  - Protein total abnormal [Unknown]
  - Azotaemia [Unknown]
  - Keratoacanthoma [Unknown]
  - Cardiac murmur [Unknown]
  - Myelodysplastic syndrome [Unknown]
  - Proteinuria [Unknown]
  - Purpura senile [Unknown]
  - Asthenia [Unknown]
